FAERS Safety Report 8572850-1 (Version None)
Quarter: 2012Q3

REPORT INFORMATION
  Report Type: 
  Country: None (occurrence: None)
  Receive Date: 20120806
  Receipt Date: 20120802
  Transmission Date: 20120928
  Serious: Yes (Disabling, Other)
  Sender: FDA-Public Use
  Company Number: GB-B.I. PHARMACEUTICALS,INC./RIDGEFIELD-2012-UK-01024UK

PATIENT
  Age: 76 Year
  Sex: Male

DRUGS (5)
  1. LOSARTAN POTASSIUM [Concomitant]
     Dosage: 25 MG
  2. ATORVASTATIN [Concomitant]
     Dosage: 10 MG
  3. SPIRIVA [Suspect]
     Indication: CHRONIC OBSTRUCTIVE PULMONARY DISEASE
     Dosage: 18 MCG
     Route: 055
     Dates: start: 20120715, end: 20120717
  4. FINASTERIDE [Concomitant]
     Dosage: 5 MG
  5. SERETIDE [Concomitant]
     Dosage: 125 MCG

REACTIONS (1)
  - VISUAL IMPAIRMENT [None]
